FAERS Safety Report 25226584 (Version 1)
Quarter: 2025Q2

REPORT INFORMATION
  Report Type: Spontaneous
  Country: US (occurrence: US)
  Receive Date: 20250422
  Receipt Date: 20250422
  Transmission Date: 20250716
  Serious: Yes (Life-Threatening, Hospitalization)
  Sender: AMGEN
  Company Number: US-AMGEN-USASP2025077195

PATIENT
  Age: 38 Year
  Sex: Female

DRUGS (2)
  1. PREDNISONE [Suspect]
     Active Substance: PREDNISONE
     Indication: Product used for unknown indication
     Route: 065
  2. LACTULOSE [Concomitant]
     Active Substance: LACTULOSE
     Indication: Hepatic encephalopathy

REACTIONS (10)
  - Hepatic encephalopathy [Recovering/Resolving]
  - General physical health deterioration [Recovering/Resolving]
  - Vomiting [Recovering/Resolving]
  - Mental disorder [Recovering/Resolving]
  - Hepatic fibrosis [Recovering/Resolving]
  - Oroticaciduria [Recovering/Resolving]
  - Hyperammonaemia [Recovering/Resolving]
  - Urea cycle disorder [Recovering/Resolving]
  - Carbamoyl phosphate synthetase deficiency [Recovering/Resolving]
  - Nausea [Recovering/Resolving]
